FAERS Safety Report 5828087-X (Version None)
Quarter: 2008Q3

REPORT INFORMATION
  Report Type: 
  Country: None (occurrence: None)
  Receive Date: 20080730
  Receipt Date: 20071207
  Transmission Date: 20090109
  Serious: No
  Sender: FDA-Public Use
  Company Number: A0697952A

PATIENT
  Age: 2 Month
  Sex: Male

DRUGS (1)
  1. ZANTAC [Suspect]
     Indication: ILL-DEFINED DISORDER
     Dosage: 2ML TWICE PER DAY
     Route: 048
     Dates: start: 20071102

REACTIONS (2)
  - LIVER DISORDER [None]
  - OVERDOSE [None]
